FAERS Safety Report 5036167-4 (Version None)
Quarter: 2006Q2

REPORT INFORMATION
  Report Type: 
  Country: None (occurrence: None)
  Receive Date: 20060531
  Receipt Date: 20060308
  Transmission Date: 20061013
  Serious: No
  Sender: FDA-Public Use
  Company Number: PHEH2006US03126

PATIENT
  Age: 19 Year
  Sex: Male

DRUGS (1)
  1. EXJADE [Suspect]
     Dosage: 20MG/KG BODY WEIGHT ORAL
     Route: 048

REACTIONS (5)
  - DIARRHOEA [None]
  - FACIAL WASTING [None]
  - NAUSEA [None]
  - PALLOR [None]
  - WEIGHT DECREASED [None]
